FAERS Safety Report 5929244-4 (Version None)
Quarter: 2008Q4

REPORT INFORMATION
  Report Type: 
  Country: None (occurrence: None)
  Receive Date: 20081023
  Receipt Date: 20081023
  Transmission Date: 20090506
  Serious: Yes (Hospitalization)
  Sender: FDA-Public Use
  Company Number: None

PATIENT
  Age: 57 Year
  Sex: Female
  Weight: 68.5 kg

DRUGS (1)
  1. MERCAPTOPURINE [Suspect]
     Indication: CROHN'S DISEASE
     Dosage: 50 MG DAILY INJ
     Dates: start: 20080406, end: 20080506

REACTIONS (1)
  - PANCREATITIS [None]
